FAERS Safety Report 22914780 (Version 2)
Quarter: 2024Q2

REPORT INFORMATION
  Report Type: Spontaneous
  Country: US (occurrence: US)
  Receive Date: 20230907
  Receipt Date: 20240417
  Transmission Date: 20240716
  Serious: No
  Sender: FDA-Public Use
  Company Number: US-BIOGEN-2023BI01224588

PATIENT
  Sex: Male

DRUGS (4)
  1. VUMERITY [Suspect]
     Active Substance: DIROXIMEL FUMARATE
     Indication: Multiple sclerosis
     Dosage: TAKE 2 CAPSULES BY MOUTH TWICE A DAY
     Route: 050
  2. FAMOTIDINE [Concomitant]
     Active Substance: FAMOTIDINE
     Route: 050
  3. PEPCID AC MAXIMUM STRENGTH [Concomitant]
     Active Substance: FAMOTIDINE
     Route: 050
  4. KEPPRA [Concomitant]
     Active Substance: LEVETIRACETAM
     Route: 050

REACTIONS (2)
  - Product dose omission issue [Unknown]
  - Pruritus [Unknown]
